FAERS Safety Report 7091881-4 (Version None)
Quarter: 2010Q4

REPORT INFORMATION
  Report Type: 
  Country: None (occurrence: None)
  Receive Date: 20101109
  Receipt Date: 20101029
  Transmission Date: 20110411
  Serious: Yes (Hospitalization)
  Sender: FDA-Public Use
  Company Number: CA-JNJFOC-20101101168

PATIENT
  Age: 40 Year
  Sex: Male
  Weight: 108 kg

DRUGS (7)
  1. REMICADE [Suspect]
     Indication: ANKYLOSING SPONDYLITIS
     Route: 042
  2. PERCOCET [Concomitant]
     Indication: ANKYLOSING SPONDYLITIS
     Route: 048
  3. OXYCONTIN [Concomitant]
     Indication: ANKYLOSING SPONDYLITIS
     Route: 048
  4. NOVORAPID [Concomitant]
     Indication: TYPE 2 DIABETES MELLITUS
     Route: 058
  5. LEVEMIR [Concomitant]
     Indication: TYPE 2 DIABETES MELLITUS
     Route: 058
  6. FENOFIBRATE [Concomitant]
  7. NAPROSYN [Concomitant]
     Indication: ANKYLOSING SPONDYLITIS
     Route: 048

REACTIONS (1)
  - PANCREATITIS ACUTE [None]
